FAERS Safety Report 7132541-0 (Version None)
Quarter: 2010Q4

REPORT INFORMATION
  Report Type: 
  Country: None (occurrence: None)
  Receive Date: 20101202
  Receipt Date: 20101129
  Transmission Date: 20110411
  Serious: Yes (Death)
  Sender: FDA-Public Use
  Company Number: CL-ROCHE-745073

PATIENT
  Sex: Male
  Weight: 68 kg

DRUGS (3)
  1. CAPECITABINE [Suspect]
     Indication: GASTRIC CANCER
     Dosage: PER 12 HOURS
     Route: 048
     Dates: start: 20101007
  2. ATENOLOL [Concomitant]
     Indication: HYPERTENSION
  3. LOSARTAN [Concomitant]
     Indication: HYPERTENSION

REACTIONS (1)
  - DISEASE PROGRESSION [None]
